FAERS Safety Report 6279261-2 (Version None)
Quarter: 2009Q3

REPORT INFORMATION
  Report Type: 
  Country: None (occurrence: None)
  Receive Date: 20090721
  Receipt Date: 20090708
  Transmission Date: 20100115
  Serious: Yes (Hospitalization)
  Sender: FDA-Public Use
  Company Number: 233036K08USA

PATIENT
  Age: 66 Year
  Sex: Female

DRUGS (15)
  1. REBIF [Suspect]
     Indication: MULTIPLE SCLEROSIS
     Dosage: SUBCUTANEOUS; 44 MCG, 3 IN 1 WEEKS, SUBCUTANEOUS
     Route: 058
     Dates: start: 20060601, end: 20070601
  2. REBIF [Suspect]
     Indication: MULTIPLE SCLEROSIS
     Dosage: SUBCUTANEOUS; 44 MCG, 3 IN 1 WEEKS, SUBCUTANEOUS
     Route: 058
     Dates: start: 20081015, end: 20090101
  3. ZANAFLEX [Concomitant]
  4. LEVOTHYROXINE (LEVOTHYROXINE /00068001/) [Concomitant]
  5. DITROPAN XL (OXYBUTYNIN /00538901/) [Concomitant]
  6. ARICEPT [Concomitant]
  7. AMBIEN CR [Concomitant]
  8. PROVIGIL [Concomitant]
  9. SINGULAIR (MONTELUKAST /01362601/) [Concomitant]
  10. SYMBICORT [Concomitant]
  11. ANTIVERT [Concomitant]
  12. LODINE [Concomitant]
  13. ARIMIDEX [Concomitant]
  14. IMITREX [Concomitant]
  15. LEXAPRO [Concomitant]

REACTIONS (8)
  - BREAST CANCER [None]
  - DEHYDRATION [None]
  - DRUG INEFFECTIVE [None]
  - DYSSTASIA [None]
  - FATIGUE [None]
  - GASTROENTERITIS [None]
  - GASTROOESOPHAGEAL REFLUX DISEASE [None]
  - STAPHYLOCOCCAL INFECTION [None]
